FAERS Safety Report 6546091-3 (Version None)
Quarter: 2010Q1

REPORT INFORMATION
  Report Type: 
  Country: None (occurrence: None)
  Receive Date: 20100122
  Receipt Date: 20100117
  Transmission Date: 20100710
  Serious: No
  Sender: FDA-Public Use
  Company Number: DE-BIOGENIDEC-2008BI030787

PATIENT
  Age: 26 Year
  Sex: Female
  Weight: 52 kg

DRUGS (2)
  1. TYSABRI [Suspect]
     Indication: RELAPSING-REMITTING MULTIPLE SCLEROSIS
     Route: 042
     Dates: start: 20080222
  2. BACLOFEN [Concomitant]
     Route: 048

REACTIONS (5)
  - CENTRAL NERVOUS SYSTEM LESION [None]
  - GAIT DISTURBANCE [None]
  - MONOPARESIS [None]
  - MULTIPLE SCLEROSIS RELAPSE [None]
  - MUSCULAR WEAKNESS [None]
